FAERS Safety Report 7954601-4 (Version None)
Quarter: 2011Q4

REPORT INFORMATION
  Report Type: 
  Country: None (occurrence: None)
  Receive Date: 20111202
  Receipt Date: 20111127
  Transmission Date: 20120403
  Serious: Yes (Death)
  Sender: FDA-Public Use
  Company Number: PHHY2011IE103958

PATIENT
  Age: 19 Month
  Sex: Male

DRUGS (3)
  1. CARBAMAZEPINE [Suspect]
  2. CLONAZEPAM [Concomitant]
  3. BACLOFEN [Concomitant]

REACTIONS (2)
  - RESPIRATORY FAILURE [None]
  - DRUG INEFFECTIVE [None]
